FAERS Safety Report 5195485-X (Version None)
Quarter: 2007Q1

REPORT INFORMATION
  Report Type: 
  Country: None (occurrence: None)
  Receive Date: 20070102
  Receipt Date: 20061218
  Transmission Date: 20070707
  Serious: Yes (Hospitalization)
  Sender: FDA-Public Use
  Company Number: JP-PFIZER INC-2006151422

PATIENT
  Age: 70 Year
  Sex: Male

DRUGS (5)
  1. HALCION [Suspect]
     Dosage: DAILY DOSE:.25MG
     Route: 048
  2. LOXONIN [Concomitant]
     Route: 048
  3. KELNAC [Concomitant]
     Route: 048
  4. FULCALIQ [Concomitant]
     Route: 042
  5. CEFMETAZON [Concomitant]

REACTIONS (3)
  - CELLULITIS [None]
  - PAIN [None]
  - RESTLESSNESS [None]
